FAERS Safety Report 4947835-4 (Version None)
Quarter: 2006Q1

REPORT INFORMATION
  Report Type: 
  Country: None (occurrence: None)
  Receive Date: 20060320
  Receipt Date: 20060314
  Transmission Date: 20060701
  Serious: Yes (Other)
  Sender: FDA-Public Use
  Company Number: PHNU2006DE01314

PATIENT
  Sex: Male

DRUGS (1)
  1. CLOZAPINE [Suspect]
     Dosage: UP TO 12.5 MG, 5QD
     Route: 048
     Dates: start: 19960101

REACTIONS (2)
  - BIOPSY KIDNEY ABNORMAL [None]
  - GLOMERULONEPHRITIS MEMBRANOPROLIFERATIVE [None]
